FAERS Safety Report 25282015 (Version 2)
Quarter: 2025Q2

REPORT INFORMATION
  Report Type: Spontaneous
  Country: US (occurrence: US)
  Receive Date: 20250508
  Receipt Date: 20250521
  Transmission Date: 20250717
  Serious: Yes (Other)
  Sender: TEVA
  Company Number: US-TEVA-VS-3327780

PATIENT
  Age: 52 Year
  Sex: Male

DRUGS (2)
  1. PREDNISONE [Suspect]
     Active Substance: PREDNISONE
     Indication: Crohn^s disease
     Route: 065
  2. FLUCONAZOLE [Suspect]
     Active Substance: FLUCONAZOLE
     Indication: Candida infection
     Route: 065
     Dates: start: 202304

REACTIONS (4)
  - Liver abscess [Recovering/Resolving]
  - Staphylococcal infection [Recovering/Resolving]
  - Drug ineffective [Unknown]
  - Portal hypertension [Recovering/Resolving]

NARRATIVE: CASE EVENT DATE: 20230101
